FAERS Safety Report 13657989 (Version 1)
Quarter: 2017Q2

REPORT INFORMATION
  Report Type: Spontaneous
  Country: FR (occurrence: FR)
  Receive Date: 20170616
  Receipt Date: 20170616
  Transmission Date: 20170830
  Serious: Yes (Hospitalization)
  Sender: FDA-Public Use
  Company Number: FR-ROCHE-1947567

PATIENT
  Age: 65 Year
  Sex: Male

DRUGS (7)
  1. SPIRONOLACTONE. [Suspect]
     Active Substance: SPIRONOLACTONE
     Indication: OEDEMA
     Route: 048
     Dates: start: 201705, end: 20170524
  2. FLAGYL [Suspect]
     Active Substance: METRONIDAZOLE\METRONIDAZOLE HYDROCHLORIDE
     Indication: INFECTION
     Route: 048
     Dates: start: 20170509, end: 20170523
  3. ROCEPHINE [Suspect]
     Active Substance: CEFTRIAXONE SODIUM
     Indication: INFECTION
  4. ROCEPHINE [Suspect]
     Active Substance: CEFTRIAXONE SODIUM
     Indication: CHOLECYSTITIS ACUTE
     Route: 042
     Dates: start: 20170508, end: 20170523
  5. PROCORALAN [Suspect]
     Active Substance: IVABRADINE
     Indication: CARDIAC FAILURE
     Route: 048
     Dates: start: 20170505
  6. FLAGYL [Suspect]
     Active Substance: METRONIDAZOLE\METRONIDAZOLE HYDROCHLORIDE
     Indication: CHOLECYSTITIS ACUTE
  7. LASILIX [Suspect]
     Active Substance: FUROSEMIDE
     Indication: OEDEMA
     Route: 048
     Dates: start: 201705, end: 20170524

REACTIONS (1)
  - Hepatic failure [Recovering/Resolving]

NARRATIVE: CASE EVENT DATE: 20170520
